FAERS Safety Report 9592857 (Version 1)
Quarter: 2013Q4

REPORT INFORMATION
  Report Type: Report from Study
  Country: US (occurrence: US)
  Receive Date: 20131004
  Receipt Date: 20131004
  Transmission Date: 20140711
  Serious: Yes (Hospitalization)
  Sender: FDA-Public Use
  Company Number: US-JNJFOC-20130916598

PATIENT
  Age: 74 Year
  Sex: Male
  Weight: 91.63 kg

DRUGS (5)
  1. SIMPONI [Suspect]
     Indication: PSORIATIC ARTHROPATHY
     Route: 058
     Dates: start: 201306
  2. PLAVIX [Concomitant]
     Indication: CARDIAC DISORDER
     Route: 065
  3. ASPIRIN [Concomitant]
     Indication: CARDIAC DISORDER
     Route: 048
  4. BYSTOLIC [Concomitant]
     Route: 065
  5. NORVASC [Concomitant]
     Route: 065

REACTIONS (2)
  - Chest pain [Recovered/Resolved]
  - Rash pruritic [Not Recovered/Not Resolved]
